FAERS Safety Report 8304586-6 (Version None)
Quarter: 2012Q2

REPORT INFORMATION
  Report Type: 
  Country: None (occurrence: None)
  Receive Date: 20120423
  Receipt Date: 20120413
  Transmission Date: 20120825
  Serious: Yes (Hospitalization)
  Sender: FDA-Public Use
  Company Number: US-NOVOPROD-349596

PATIENT
  Age: 15 Year
  Sex: Female
  Weight: 34.467 kg

DRUGS (1)
  1. NORDITROPIN FLEXPRO [Suspect]
     Indication: GROWTH HORMONE DEFICIENCY
     Dosage: 1.8 MG, QD
     Route: 058
     Dates: start: 20120324, end: 20120331

REACTIONS (2)
  - PYREXIA [None]
  - URTICARIA [None]
